FAERS Safety Report 14814077 (Version 6)
Quarter: 2018Q4

REPORT INFORMATION
  Report Type: Spontaneous
  Country: PR (occurrence: PR)
  Receive Date: 20180426
  Receipt Date: 20181121
  Transmission Date: 20190204
  Serious: Yes (Other)
  Sender: FDA-Public Use
  Company Number: PR-PFIZER INC-2018163962

PATIENT
  Age: 72 Year
  Sex: Male
  Weight: 93.88 kg

DRUGS (4)
  1. SUTENT [Suspect]
     Active Substance: SUNITINIB MALATE
     Dosage: 37.5 MG, CYCLIC (DAILY FOR 14 DAYS, REST 7 DAYS)
     Route: 048
     Dates: start: 2018, end: 2018
  2. SUTENT [Suspect]
     Active Substance: SUNITINIB MALATE
     Dosage: 37.5 MG, CYCLIC (DAILY FOR 14 DAYS, REST 7 DAYS)
     Route: 048
     Dates: start: 2018
  3. SUTENT [Suspect]
     Active Substance: SUNITINIB MALATE
     Indication: RENAL CANCER
     Dosage: 50 MG, CYCLIC (DAILY FOR 28 DAYS)
     Route: 048
     Dates: start: 20180116, end: 2018
  4. SUTENT [Suspect]
     Active Substance: SUNITINIB MALATE
     Dosage: 37.5 MG, DAILY
     Route: 048
     Dates: start: 2018, end: 2018

REACTIONS (8)
  - Diarrhoea [Unknown]
  - Abdominal discomfort [Unknown]
  - Nausea [Unknown]
  - Neoplasm progression [Unknown]
  - Thyroid function test abnormal [Unknown]
  - Dyspnoea at rest [Unknown]
  - Abdominal pain [Unknown]
  - Influenza [Unknown]

NARRATIVE: CASE EVENT DATE: 2018
